FAERS Safety Report 8920661 (Version 1)
Quarter: 2012Q4

REPORT INFORMATION
  Report Type: 
  Country: US (occurrence: US)
  Receive Date: 20121121
  Receipt Date: 20121121
  Transmission Date: 20130627
  Serious: No
  Sender: FDA-Public Use
  Company Number: US-TEVA-371093USA

PATIENT
  Age: 26 Year
  Sex: Female
  Weight: 49.94 kg

DRUGS (3)
  1. PLAN B ONE-STEP [Suspect]
     Indication: MENSTRUATION IRREGULAR
     Dosage: 1.5 Milligram Daily;
     Route: 048
     Dates: start: 20121112, end: 20121112
  2. CYMBALTA [Concomitant]
     Indication: ANXIETY
  3. CYMBALTA [Concomitant]
     Indication: DEPRESSION

REACTIONS (3)
  - Abdominal distension [Not Recovered/Not Resolved]
  - Pelvic pain [Not Recovered/Not Resolved]
  - Menstruation irregular [Not Recovered/Not Resolved]
